FAERS Safety Report 6649125-0 (Version None)
Quarter: 2010Q1

REPORT INFORMATION
  Report Type: 
  Country: None (occurrence: None)
  Receive Date: 20100322
  Receipt Date: 20100312
  Transmission Date: 20100710
  Serious: Yes (Hospitalization)
  Sender: FDA-Public Use
  Company Number: A000115250

PATIENT
  Sex: Female

DRUGS (3)
  1. VANCOMYCIN HCL [Suspect]
     Indication: ANTIBIOTIC THERAPY
     Dosage: INTRAVENOUS
     Route: 042
     Dates: start: 20090101
  2. PREDNISONE TAB [Concomitant]
  3. IV PIPERACILLIN/TAZOBACTAM [Concomitant]

REACTIONS (5)
  - MOUTH ULCERATION [None]
  - ORAL PAIN [None]
  - PYREXIA [None]
  - RASH ERYTHEMATOUS [None]
  - SYSTEMIC LUPUS ERYTHEMATOSUS [None]
